FAERS Safety Report 17114352 (Version 1)
Quarter: 2019Q4

REPORT INFORMATION
  Report Type: Spontaneous
  Country: FR (occurrence: FR)
  Receive Date: 20191205
  Receipt Date: 20191205
  Transmission Date: 20200122
  Serious: Yes (Hospitalization)
  Sender: FDA-Public Use
  Company Number: FR-SUN PHARMACEUTICAL INDUSTRIES LTD-2019RR-229978

PATIENT
  Age: 22 Year
  Sex: Female

DRUGS (3)
  1. DAFALGAN CODEINE [Suspect]
     Active Substance: ACETAMINOPHEN\CODEINE PHOSPHATE
     Indication: PRODUCT USED FOR UNKNOWN INDICATION
     Dosage: 9 DOSAGE FORM, IN TOTAL
     Route: 048
     Dates: start: 20180228, end: 20180228
  2. VENLAFAXINE [Suspect]
     Active Substance: VENLAFAXINE HYDROCHLORIDE
     Indication: PRODUCT USED FOR UNKNOWN INDICATION
     Dosage: 112.5 MILLIGRAM, IN TOTAL
     Route: 048
     Dates: start: 20180228, end: 20180228
  3. VERATRAN [Suspect]
     Active Substance: CLOTIAZEPAM
     Indication: PRODUCT USED FOR UNKNOWN INDICATION
     Dosage: 6 DOSAGE FORM, IN TOTAL
     Route: 048
     Dates: start: 20180228, end: 20180228

REACTIONS (5)
  - Hypersensitivity [Recovered/Resolved]
  - Toxicity to various agents [Recovered/Resolved]
  - Tachycardia [Recovered/Resolved]
  - Analgesic drug level increased [Recovered/Resolved]
  - Suicide attempt [Recovered/Resolved]

NARRATIVE: CASE EVENT DATE: 20180228
